FAERS Safety Report 12463226 (Version 1)
Quarter: 2016Q2

REPORT INFORMATION
  Report Type: Spontaneous
  Country: CA (occurrence: CA)
  Receive Date: 20160614
  Receipt Date: 20160614
  Transmission Date: 20160815
  Serious: Yes (Hospitalization)
  Sender: FDA-Public Use
  Company Number: CA-UCBSA-2016021254

PATIENT
  Age: 16 Year
  Sex: Male
  Weight: 80 kg

DRUGS (8)
  1. LORAZEPAM. [Concomitant]
     Active Substance: LORAZEPAM
     Indication: PRODUCT USED FOR UNKNOWN INDICATION
     Dosage: UNK
  2. PHENOBARBITAL. [Suspect]
     Active Substance: PHENOBARBITAL
     Indication: FEBRILE CONVULSION
     Dosage: 145.0 MG,  (4 EVERY 1 DAY)
     Route: 048
  3. CLOBAZAM [Suspect]
     Active Substance: CLOBAZAM
     Indication: FEBRILE CONVULSION
     Dosage: 20 MG (2 EVERY ONE DAY)
     Route: 048
  4. VIMPAT [Suspect]
     Active Substance: LACOSAMIDE
     Indication: FEBRILE CONVULSION
     Dosage: 2 EVERY 1 DAY
     Route: 048
  5. LEVOCARNITINE. [Concomitant]
     Active Substance: LEVOCARNITINE
     Indication: PRODUCT USED FOR UNKNOWN INDICATION
     Dosage: UNK
  6. RANITIDINE. [Concomitant]
     Active Substance: RANITIDINE
     Indication: PRODUCT USED FOR UNKNOWN INDICATION
     Dosage: UNK
  7. VIMPAT [Suspect]
     Active Substance: LACOSAMIDE
     Indication: OFF LABEL USE
  8. NAPROXEN. [Concomitant]
     Active Substance: NAPROXEN
     Indication: PRODUCT USED FOR UNKNOWN INDICATION
     Dosage: UNK

REACTIONS (5)
  - Lip swelling [Unknown]
  - Skin exfoliation [Unknown]
  - Erythema [Unknown]
  - Cheilitis [Unknown]
  - Off label use [Unknown]
